FAERS Safety Report 9227914 (Version 1)
Quarter: 2013Q2

REPORT INFORMATION
  Report Type: Spontaneous
  Country: FR (occurrence: FR)
  Receive Date: 20130412
  Receipt Date: 20130412
  Transmission Date: 20140414
  Serious: Yes (Hospitalization, Other)
  Sender: FDA-Public Use
  Company Number: FR-PFIZER INC-2013110900

PATIENT
  Age: 64 Year
  Sex: Female

DRUGS (2)
  1. DOXORUBICIN HCL [Suspect]
     Indication: SYNOVIAL SARCOMA METASTATIC
     Dosage: UNK
     Route: 042
     Dates: start: 20121205, end: 20121205
  2. HOLOXAN [Suspect]
     Indication: SYNOVIAL SARCOMA METASTATIC
     Dosage: UNK
     Route: 042
     Dates: start: 20121205, end: 20121205

REACTIONS (1)
  - Encephalopathy [Recovered/Resolved]
